FAERS Safety Report 10046776 (Version 1)
Quarter: 2014Q1

REPORT INFORMATION
  Report Type: Spontaneous
  Country: US (occurrence: None)
  Receive Date: 20140328
  Receipt Date: 20140328
  Transmission Date: 20141002
  Serious: Yes (Life-Threatening, Hospitalization)
  Sender: FDA-Public Use
  Company Number: None

PATIENT
  Age: 70 Year
  Sex: Male
  Weight: 131.54 kg

DRUGS (1)
  1. NAPROXEN SODIUM [Suspect]
     Indication: ARTHRALGIA
     Route: 048

REACTIONS (2)
  - Feeling abnormal [None]
  - Drug hypersensitivity [None]
